FAERS Safety Report 10722539 (Version 2)
Quarter: 2015Q1

REPORT INFORMATION
  Report Type: Spontaneous
  Country: US (occurrence: US)
  Receive Date: 20150120
  Receipt Date: 20150129
  Transmission Date: 20150721
  Serious: No
  Sender: FDA-Public Use
  Company Number: US-009507513-1501USA005380

PATIENT
  Age: 27 Year
  Sex: Female
  Weight: 58.73 kg

DRUGS (2)
  1. TYSABRI [Concomitant]
     Active Substance: NATALIZUMAB
  2. NEXPLANON [Suspect]
     Active Substance: ETONOGESTREL
     Indication: CONTRACEPTION
     Dosage: SINGLE ROD
     Route: 059
     Dates: start: 20141218

REACTIONS (2)
  - Pruritus [Not Recovered/Not Resolved]
  - Excoriation [Unknown]

NARRATIVE: CASE EVENT DATE: 20141218
